FAERS Safety Report 4622896-0 (Version None)
Quarter: 2005Q1

REPORT INFORMATION
  Report Type: 
  Country: None (occurrence: None)
  Receive Date: 20050329
  Receipt Date: 20050311
  Transmission Date: 20050727
  Serious: Yes (Life-Threatening, Hospitalization, Disabling)
  Sender: FDA-Public Use
  Company Number: 10565

PATIENT
  Sex: Female

DRUGS (2)
  1. AMIODARONE HCL [Suspect]
     Indication: ATRIAL FIBRILLATION
     Dosage: 200 MG FREQ
     Route: 048
     Dates: start: 19990801, end: 20050220
  2. FUROSEMIDE [Concomitant]

REACTIONS (5)
  - CRACKLES LUNG [None]
  - HYPOXIA [None]
  - LEFT VENTRICULAR FAILURE [None]
  - PO2 DECREASED [None]
  - PULMONARY FIBROSIS [None]
